FAERS Safety Report 12341895 (Version 1)
Quarter: 2016Q2

REPORT INFORMATION
  Report Type: Spontaneous
  Country: US (occurrence: None)
  Receive Date: 20160505
  Receipt Date: 20160505
  Transmission Date: 20160815
  Serious: No
  Sender: FDA-Public Use
  Company Number: None

PATIENT
  Age: 11 Year
  Sex: Male
  Weight: 31.07 kg

DRUGS (3)
  1. VYVANSE [Suspect]
     Active Substance: LISDEXAMFETAMINE DIMESYLATE
     Indication: ATTENTION DEFICIT/HYPERACTIVITY DISORDER
     Route: 048
  2. CLONIDINE. [Concomitant]
     Active Substance: CLONIDINE
  3. MELATONIN [Concomitant]
     Active Substance: MELATONIN

REACTIONS (4)
  - Diarrhoea [None]
  - Constipation [None]
  - X-ray gastrointestinal tract abnormal [None]
  - Abdominal pain [None]

NARRATIVE: CASE EVENT DATE: 20160315
